FAERS Safety Report 13653388 (Version 1)
Quarter: 2017Q2

REPORT INFORMATION
  Report Type: Spontaneous
  Country: US (occurrence: US)
  Receive Date: 20170614
  Receipt Date: 20170614
  Transmission Date: 20170830
  Serious: No
  Sender: FDA-Public Use
  Company Number: US-ROCHE-1297360

PATIENT
  Sex: Male

DRUGS (7)
  1. XELODA [Suspect]
     Active Substance: CAPECITABINE
     Indication: COLON CANCER
     Dosage: 7 DAYS ON AND 7 DAYS OFF
     Route: 048
     Dates: start: 20130820
  2. LEVOTHYROXINE. [Concomitant]
     Active Substance: LEVOTHYROXINE
  3. XELODA [Suspect]
     Active Substance: CAPECITABINE
     Indication: PROSTATE CANCER
     Dosage: 7 DAYS ON AND 7 DAYS OFF
     Route: 048
  4. FERROUS GLUCONATE [Concomitant]
     Active Substance: FERROUS GLUCONATE
  5. NIASPAN [Concomitant]
     Active Substance: NIACIN
  6. FOLIC ACID. [Concomitant]
     Active Substance: FOLIC ACID
  7. XELODA [Suspect]
     Active Substance: CAPECITABINE
     Indication: ANAEMIA
     Dosage: 7 DAYS ON AND 7 DAYS OFF
     Route: 048
     Dates: start: 20131227

REACTIONS (4)
  - Dry skin [Unknown]
  - Headache [Unknown]
  - Diarrhoea [Unknown]
  - Pain in jaw [Unknown]
